FAERS Safety Report 9910854 (Version 1)
Quarter: 2014Q1

REPORT INFORMATION
  Report Type: Spontaneous
  Country: US (occurrence: US)
  Receive Date: 20140219
  Receipt Date: 20140219
  Transmission Date: 20141002
  Serious: Yes (Hospitalization)
  Sender: FDA-Public Use
  Company Number: US-BAYER-2014-021829

PATIENT
  Age: 58 Year
  Sex: Male
  Weight: 90.7 kg

DRUGS (19)
  1. CIPRO [Suspect]
     Indication: ANTIBIOTIC THERAPY
     Dosage: 500 MG, BID
     Route: 048
     Dates: start: 20130601, end: 20130711
  2. BACTRIM [Suspect]
     Indication: ANTIBIOTIC THERAPY
     Dosage: 800 MG, BID
     Route: 048
     Dates: start: 20130418, end: 20130428
  3. BACTRIM [Suspect]
     Indication: ANTIBIOTIC THERAPY
     Dosage: 800 MG, BID
     Route: 048
     Dates: start: 20130716, end: 20130723
  4. AZITHROMYCIN [Suspect]
     Indication: ANTIBIOTIC THERAPY
     Dosage: 500 MG, QD
     Route: 048
     Dates: start: 20130603, end: 20130610
  5. CLINDAMYCIN HYDROCHLORIDE [Suspect]
     Indication: ANTIBIOTIC THERAPY
     Dosage: 150 MG, 3 TABS EVERY 8 HOURS
     Route: 048
     Dates: start: 20130803, end: 20130813
  6. METRONIDAZOLE [Suspect]
     Indication: ANTIBIOTIC THERAPY
     Dosage: 500 MG, 1 TAB, EVERY 8 HOURS
     Route: 048
     Dates: start: 20130817, end: 20130831
  7. LEVOFLOXACIN [Suspect]
     Indication: ANTIBIOTIC THERAPY
     Dosage: 500 MG, QD
     Route: 048
     Dates: start: 20130827, end: 20130901
  8. AXITINIB [Suspect]
     Indication: RECTAL CANCER
     Dosage: 5 MG, BID
     Route: 048
     Dates: start: 20130226, end: 20130910
  9. OXALIPLATIN [Suspect]
     Indication: RECTAL CANCER
     Dosage: 179 MG, UNK
     Route: 042
     Dates: start: 20120924, end: 20130221
  10. FLUOROURACIL [Suspect]
     Indication: RECTAL CANCER
     Dosage: 844 MG, UNK
     Route: 042
     Dates: start: 20120924, end: 20130221
  11. BEVACIZUMAB [Suspect]
     Indication: RECTAL CANCER
     Dosage: 473 MG, UNK
     Route: 042
     Dates: start: 20120924, end: 20130221
  12. LEUCOVORIN [Suspect]
     Indication: RECTAL CANCER
     Dosage: 844 MG, UNK
     Route: 042
     Dates: start: 20120924, end: 20130221
  13. XANAX [Concomitant]
     Indication: ANXIETY
     Dosage: 0.25 UNK, UNK
  14. STOOL SOFTENER [Concomitant]
     Indication: CONSTIPATION
     Dosage: 1 DF, UNK
  15. ZOCOR [Concomitant]
     Indication: HYPERLIPIDAEMIA
     Dosage: 60 MG, UNK
  16. LISINOPRIL [Concomitant]
     Indication: HYPERTENSION
     Dosage: 40 MG, UNK
     Dates: start: 20121214
  17. PROZAC [Concomitant]
     Indication: DEPRESSION
     Dosage: 20 MG, UNK
     Dates: start: 20120520
  18. AMLODIPINE [Concomitant]
     Indication: HYPERTENSION
     Dosage: 10 MG, UNK
  19. METOPROLOL [Concomitant]
     Indication: HYPERTENSION
     Dosage: 100 MG, UNK
     Dates: start: 20130418

REACTIONS (4)
  - Clostridium difficile colitis [Recovered/Resolved]
  - Syncope [Recovered/Resolved]
  - Dizziness [Recovered/Resolved]
  - Blood pressure decreased [Recovered/Resolved]
